FAERS Safety Report 5852569-8 (Version None)
Quarter: 2008Q3

REPORT INFORMATION
  Report Type: 
  Country: None (occurrence: None)
  Receive Date: 20080820
  Receipt Date: 20080820
  Transmission Date: 20090109
  Serious: Yes (Life-Threatening, Hospitalization)
  Sender: FDA-Public Use
  Company Number: None

PATIENT
  Age: 31 Year
  Sex: Female
  Weight: 97.5234 kg

DRUGS (11)
  1. YASMIN [Suspect]
     Indication: BLOOD TESTOSTERONE FREE INCREASED
     Dosage: 1 DAILY PO, ABOUT 1 YEAR
     Route: 048
     Dates: start: 20070119, end: 20080618
  2. YASMIN [Suspect]
     Indication: CONTRACEPTION
     Dosage: 1 DAILY PO, ABOUT 1 YEAR
     Route: 048
     Dates: start: 20070119, end: 20080618
  3. ELAVIL [Concomitant]
  4. CYMBALTA [Concomitant]
  5. ORPHENADRINE CITRATE [Concomitant]
  6. ZYRTEC [Concomitant]
  7. BENEDRYL [Concomitant]
  8. MELATONIN [Concomitant]
  9. IMITREX [Concomitant]
  10. FIORINAL [Concomitant]
  11. SINGULAIR [Concomitant]

REACTIONS (6)
  - DIZZINESS [None]
  - FATIGUE [None]
  - HYPERHIDROSIS [None]
  - HYPERTENSION [None]
  - PULMONARY EMBOLISM [None]
  - TACHYCARDIA [None]
